FAERS Safety Report 5517755-5 (Version None)
Quarter: 2007Q4

REPORT INFORMATION
  Report Type: 
  Country: None (occurrence: None)
  Receive Date: 20071113
  Receipt Date: 20071102
  Transmission Date: 20080405
  Serious: Yes (Other)
  Sender: FDA-Public Use
  Company Number: 2007334401

PATIENT
  Age: 37 Year
  Sex: Male

DRUGS (1)
  1. PURELL UNSPECIFIED (ETHYL ALCOHOL) [Suspect]
     Indication: ROUTINE HEALTH MAINTENANCE
     Dosage: THE WHOLE BOTTLE, 2 TIMES IN 10 MINUTES, TOPICAL
     Route: 061
     Dates: start: 20071102, end: 20071102

REACTIONS (6)
  - BURNING SENSATION [None]
  - INCORRECT ROUTE OF DRUG ADMINISTRATION [None]
  - OEDEMA PERIPHERAL [None]
  - SKIN BURNING SENSATION [None]
  - SKIN HAEMORRHAGE [None]
  - WRONG TECHNIQUE IN DRUG USAGE PROCESS [None]
